FAERS Safety Report 5342086-6 (Version None)
Quarter: 2007Q2

REPORT INFORMATION
  Report Type: 
  Country: None (occurrence: None)
  Receive Date: 20070601
  Receipt Date: 20070529
  Transmission Date: 20071010
  Serious: Yes (Hospitalization)
  Sender: FDA-Public Use
  Company Number: FR-ASTRAZENECA-2007CG00498

PATIENT
  Age: 75 Year
  Sex: Male

DRUGS (7)
  1. NEXIUM [Suspect]
     Route: 048
     Dates: start: 20070215, end: 20070221
  2. PREVISCAN [Concomitant]
     Route: 048
     Dates: start: 20070219, end: 20070221
  3. LASIX [Concomitant]
     Route: 048
     Dates: start: 20070215
  4. KARDEGIC [Concomitant]
  5. RISORDAN [Concomitant]
     Dates: start: 20070215, end: 20070215
  6. CORDARONE [Concomitant]
     Indication: ATRIAL FIBRILLATION
     Dosage: LOADING DOSE
     Dates: start: 20070216, end: 20070216
  7. CORDARONE [Concomitant]
     Dates: start: 20070217

REACTIONS (1)
  - VASCULAR PURPURA [None]
